FAERS Safety Report 8592676-2 (Version None)
Quarter: 2012Q3

REPORT INFORMATION
  Report Type: 
  Country: None (occurrence: None)
  Receive Date: 20120814
  Receipt Date: 20120522
  Transmission Date: 20120928
  Serious: No
  Sender: FDA-Public Use
  Company Number: US-COVIDIEN/TYCO HEALTHCARE/MALLINCKRODT-T201202457

PATIENT
  Sex: Female

DRUGS (2)
  1. FENTANYL [Suspect]
     Indication: PAIN
     Dosage: 50 MCG/HR Q 72 HOURS
     Route: 062
     Dates: start: 20120301
  2. OXYCONTIN [Concomitant]
     Indication: BREAKTHROUGH PAIN
     Dosage: 30 MG BID
     Route: 048

REACTIONS (3)
  - APPLICATION SITE RASH [None]
  - APPLICATION SITE EROSION [None]
  - APPLICATION SITE PARAESTHESIA [None]
